FAERS Safety Report 20064870 (Version 1)
Quarter: 2021Q4

REPORT INFORMATION
  Report Type: Spontaneous
  Country: US (occurrence: US)
  Receive Date: 20211112
  Receipt Date: 20211112
  Transmission Date: 20220303
  Serious: No
  Sender: FDA-Public Use
  Company Number: US-CELGENE-USA-20211101053

PATIENT
  Sex: Male
  Weight: 74.910 kg

DRUGS (1)
  1. REVLIMID [Suspect]
     Active Substance: LENALIDOMIDE
     Indication: Follicular lymphoma
     Dosage: 20 MILLIGRAM
     Route: 048
     Dates: start: 202109

REACTIONS (8)
  - Feeling abnormal [Unknown]
  - Chills [Unknown]
  - Erythema [Unknown]
  - Fatigue [Recovering/Resolving]
  - Pruritus [Unknown]
  - Back pain [Unknown]
  - Dyspnoea [Unknown]
  - Blood potassium decreased [Unknown]
